FAERS Safety Report 4979008-3 (Version None)
Quarter: 2006Q2

REPORT INFORMATION
  Report Type: 
  Country: None (occurrence: None)
  Receive Date: 20060419
  Receipt Date: 20060419
  Transmission Date: 20061013
  Serious: Yes (Hospitalization)
  Sender: FDA-Public Use
  Company Number: None

PATIENT
  Age: 77 Year
  Sex: Male
  Weight: 60.8 kg

DRUGS (9)
  1. SALSALATE [Suspect]
     Indication: BACK PAIN
     Dosage: 1 G PO BID
     Route: 048
     Dates: start: 20060101, end: 20060401
  2. ISOSORBIDE MONONITRATE [Concomitant]
  3. CARVEDILOL [Concomitant]
  4. HYDROCODONE 10/ ACETAMINOPHEN 500MG [Concomitant]
  5. QUININE SULFATE [Concomitant]
  6. FUROSEMIDE [Concomitant]
  7. SIMVASTATIN [Concomitant]
  8. PRAMIPEXOLE DIHYDROCHLORIDE [Concomitant]
  9. LANOXIN [Concomitant]

REACTIONS (1)
  - GASTROINTESTINAL HAEMORRHAGE [None]
